FAERS Safety Report 17498079 (Version 6)
Quarter: 2020Q4

REPORT INFORMATION
  Report Type: Report from Study
  Country: None (occurrence: US)
  Receive Date: 20200304
  Receipt Date: 20201029
  Transmission Date: 20210113
  Serious: Yes (Hospitalization, Other)
  Sender: FDA-Public Use
  Company Number: US-ABBVIE-19K-163-3166729-00

PATIENT
  Age: 71 Year
  Sex: Male
  Weight: 80.81 kg

DRUGS (11)
  1. IMBRUVICA [Suspect]
     Active Substance: IBRUTINIB
     Route: 048
  2. IMBRUVICA [Suspect]
     Active Substance: IBRUTINIB
     Indication: CHRONIC LYMPHOCYTIC LEUKAEMIA
     Dosage: 420 MG, QD
     Route: 048
     Dates: start: 20191104
  3. IMBRUVICA [Suspect]
     Active Substance: IBRUTINIB
     Route: 048
     Dates: end: 202008
  4. IMBRUVICA [Suspect]
     Active Substance: IBRUTINIB
     Indication: CHRONIC LYMPHOCYTIC LEUKAEMIA
     Dosage: 420 MG, QD
     Route: 048
  5. LEVOTHYROXINE. [Concomitant]
     Active Substance: LEVOTHYROXINE
     Indication: HYPOTHYROIDISM
  6. IMBRUVICA [Suspect]
     Active Substance: IBRUTINIB
     Route: 048
     Dates: start: 20200823
  7. IMBRUVICA [Suspect]
     Active Substance: IBRUTINIB
     Route: 048
     Dates: start: 202008
  8. IMBRUVICA [Suspect]
     Active Substance: IBRUTINIB
     Dosage: 420 MG, QD
     Route: 048
  9. ZOCOR [Concomitant]
     Active Substance: SIMVASTATIN
     Indication: BLOOD CHOLESTEROL
  10. SIMVASTATIN. [Concomitant]
     Active Substance: SIMVASTATIN
     Indication: PRODUCT USED FOR UNKNOWN INDICATION
  11. IMBRUVICA [Suspect]
     Active Substance: IBRUTINIB
     Route: 048
     Dates: start: 20191104, end: 202008

REACTIONS (46)
  - Surgery [Unknown]
  - Dysuria [Recovered/Resolved]
  - Toxicity to various agents [Recovered/Resolved]
  - Erythema [Unknown]
  - Rash [Recovering/Resolving]
  - Influenza like illness [Not Recovered/Not Resolved]
  - Renal failure [Unknown]
  - Renal pain [Recovered/Resolved]
  - Myalgia [Recovered/Resolved]
  - Immunosuppression [Unknown]
  - Hair texture abnormal [Unknown]
  - Nausea [Recovered/Resolved]
  - Dysuria [Not Recovered/Not Resolved]
  - Blood blister [Unknown]
  - Hair colour changes [Unknown]
  - Amnesia [Recovered/Resolved]
  - Bladder disorder [Unknown]
  - White blood cell count decreased [Unknown]
  - Vomiting [Unknown]
  - Blood creatinine increased [Unknown]
  - Urinary bladder toxicity [Recovered/Resolved]
  - Adverse drug reaction [Recovered/Resolved]
  - Influenza like illness [Recovered/Resolved]
  - Diarrhoea [Recovered/Resolved]
  - Bladder discomfort [Recovered/Resolved]
  - Renal disorder [Recovered/Resolved]
  - Stomatitis [Recovered/Resolved]
  - Pain [Unknown]
  - Atrial fibrillation [Not Recovered/Not Resolved]
  - Nausea [Recovered/Resolved]
  - Diarrhoea [Recovered/Resolved]
  - Laboratory test abnormal [Recovering/Resolving]
  - Retching [Recovered/Resolved]
  - Urinary tract discomfort [Recovering/Resolving]
  - Prostatitis [Recovered/Resolved]
  - Dysuria [Unknown]
  - Diarrhoea [Recovered/Resolved]
  - Nephrolithiasis [Unknown]
  - Pollakiuria [Recovered/Resolved]
  - Transient global amnesia [Recovered/Resolved]
  - Transient global amnesia [Recovered/Resolved]
  - Bladder pain [Recovered/Resolved]
  - Myalgia [Not Recovered/Not Resolved]
  - Fatigue [Recovering/Resolving]
  - Adverse drug reaction [Recovering/Resolving]
  - Stomatitis [Recovered/Resolved]

NARRATIVE: CASE EVENT DATE: 20191104
